FAERS Safety Report 5194557-3 (Version None)
Quarter: 2006Q4

REPORT INFORMATION
  Report Type: 
  Country: None (occurrence: None)
  Receive Date: 20061221
  Receipt Date: 20061204
  Transmission Date: 20070319
  Serious: Yes (Other)
  Sender: FDA-Public Use
  Company Number: 2006-324

PATIENT
  Age: 38 Year
  Sex: 0

DRUGS (2)
  1. CITALOPRAM HYDROBROMIDE [Suspect]
     Indication: DEPRESSION
     Dosage: 30MG
     Dates: start: 20060720
  2. ARIPIPRAZOLE [Suspect]
     Indication: SCHIZOPHRENIA
     Dosage: 20MG
     Dates: start: 20060220

REACTIONS (1)
  - DEMENTIA ALZHEIMER'S TYPE [None]
